FAERS Safety Report 21489333 (Version 3)
Quarter: 2024Q1

REPORT INFORMATION
  Report Type: Other
  Country: US (occurrence: None)
  Receive Date: 20221021
  Receipt Date: 20240201
  Transmission Date: 20240410
  Serious: No
  Sender: FDA-Public Use
  Company Number: US-ROCHE-3203045

PATIENT
  Age: 79 Year
  Sex: Female

DRUGS (2)
  1. ESBRIET [Suspect]
     Active Substance: PIRFENIDONE
     Indication: Idiopathic pulmonary fibrosis
     Dosage: TAKE 1 TABLET BY MOUTH 3 TIMES A DAY
     Route: 048
  2. ESBRIET [Suspect]
     Active Substance: PIRFENIDONE
     Indication: Diabetes mellitus

REACTIONS (7)
  - Malaise [Unknown]
  - Memory impairment [Unknown]
  - Cataract [Unknown]
  - Weight decreased [Unknown]
  - Carpal tunnel syndrome [Unknown]
  - Rheumatoid arthritis [Unknown]
  - Fall [Unknown]

NARRATIVE: CASE EVENT DATE: 20220601
